FAERS Safety Report 16345309 (Version 1)
Quarter: 2019Q2

REPORT INFORMATION
  Report Type: Spontaneous
  Country: AU (occurrence: AU)
  Receive Date: 20190523
  Receipt Date: 20190523
  Transmission Date: 20190711
  Serious: Yes (Death)
  Sender: FDA-Public Use
  Company Number: AU-AMGEN-AUSSP2019080445

PATIENT
  Sex: Female

DRUGS (3)
  1. CARBOPLATIN;PEMETREXED [Concomitant]
     Dosage: UNK
  2. XGEVA [Suspect]
     Active Substance: DENOSUMAB
     Indication: METASTASES TO BONE
     Dosage: 120 MILLIGRAM (1.7ML VIAL PACK), Q4WK
     Route: 065
  3. CARBOPLATIN;GEMCITABINE [Concomitant]
     Dosage: UNK

REACTIONS (1)
  - Disease progression [Fatal]
